FAERS Safety Report 11891154 (Version 1)
Quarter: 2016Q1

REPORT INFORMATION
  Report Type: Spontaneous
  Country: US (occurrence: None)
  Receive Date: 20160105
  Receipt Date: 20160105
  Transmission Date: 20160526
  Serious: Yes (Death)
  Sender: FDA-Public Use
  Company Number: None

PATIENT
  Age: 75 Year
  Sex: Female
  Weight: 82.56 kg

DRUGS (1)
  1. ISOVUE 300 [Suspect]
     Active Substance: IOPAMIDOL
     Indication: CATHETERISATION CARDIAC
     Dates: start: 20150924, end: 20150924

REACTIONS (14)
  - Lung consolidation [None]
  - Aspiration [None]
  - Bradycardia [None]
  - Blood creatinine increased [None]
  - Acute myocardial infarction [None]
  - Hypotension [None]
  - Reaction to azo-dyes [None]
  - Pneumonia [None]
  - Pulmonary oedema [None]
  - Septic shock [None]
  - Pulseless electrical activity [None]
  - Oxygen saturation decreased [None]
  - Sleep apnoea syndrome [None]
  - Presyncope [None]

NARRATIVE: CASE EVENT DATE: 20150924
